FAERS Safety Report 5074584-7 (Version None)
Quarter: 2006Q3

REPORT INFORMATION
  Report Type: 
  Country: None (occurrence: None)
  Receive Date: 20060808
  Receipt Date: 20060202
  Transmission Date: 20061208
  Serious: No
  Sender: FDA-Public Use
  Company Number: US-AMGEN-KDL167721

PATIENT
  Sex: Female

DRUGS (7)
  1. PROCRIT [Suspect]
     Indication: RENAL FAILURE CHRONIC
     Route: 058
     Dates: start: 20000601, end: 20051101
  2. ELAVIL [Concomitant]
     Route: 048
     Dates: start: 20000101
  3. ALTACE [Concomitant]
     Dates: start: 20000101
  4. PREMARIN [Concomitant]
     Route: 048
  5. LIPITOR [Concomitant]
     Route: 048
  6. VITAMIN B-12 [Concomitant]
     Route: 051
     Dates: start: 20000601
  7. DEMADEX [Concomitant]
     Route: 048
     Dates: start: 20000101

REACTIONS (7)
  - ALOPECIA [None]
  - DYSPNOEA [None]
  - EXPOSURE TO TOXIC AGENT [None]
  - HEADACHE [None]
  - HYPERSENSITIVITY [None]
  - NAIL DISCOLOURATION [None]
  - URTICARIA [None]
